FAERS Safety Report 9101006 (Version 1)
Quarter: 2013Q1

REPORT INFORMATION
  Report Type: Spontaneous
  Country: GB (occurrence: GB)
  Receive Date: 20130215
  Receipt Date: 20130215
  Transmission Date: 20140127
  Serious: Yes (Other)
  Sender: FDA-Public Use
  Company Number: GB-BAYER-2013-018859

PATIENT
  Sex: Male

DRUGS (1)
  1. LEVITRA 10 MG FILM-COATED TABLETS [Suspect]
     Dosage: UNK (STARTED ABOUT 1 YEAR AGO)

REACTIONS (4)
  - Vision blurred [Recovered/Resolved]
  - Ocular discomfort [None]
  - Foreign body sensation in eyes [None]
  - Visual acuity reduced [None]
